FAERS Safety Report 17719171 (Version 2)
Quarter: 2020Q2

REPORT INFORMATION
  Report Type: Spontaneous
  Country: CA (occurrence: CA)
  Receive Date: 20200428
  Receipt Date: 20200519
  Transmission Date: 20200714
  Serious: Yes (Other)
  Sender: FDA-Public Use
  Company Number: CA-PFIZER INC-2016550223

PATIENT
  Age: 63 Year
  Sex: Female

DRUGS (10)
  1. XELJANZ [Suspect]
     Active Substance: TOFACITINIB CITRATE
     Dosage: 5 MG, 2X/DAY, (BID)
     Route: 048
     Dates: start: 202003, end: 20200324
  2. XELJANZ [Suspect]
     Active Substance: TOFACITINIB CITRATE
     Indication: RHEUMATOID ARTHRITIS
     Dosage: 5 MG, 2X/DAY, (BID)
     Route: 048
     Dates: start: 20161125, end: 20180108
  3. XELJANZ [Suspect]
     Active Substance: TOFACITINIB CITRATE
     Dosage: 5 MG, 2X/DAY, (BID)
     Route: 048
     Dates: start: 20200331, end: 20200420
  4. CELEBREX [Concomitant]
     Active Substance: CELECOXIB
     Indication: RHEUMATOID ARTHRITIS
     Dosage: 100 MG, DAILY
     Route: 048
  5. XELJANZ [Suspect]
     Active Substance: TOFACITINIB CITRATE
     Dosage: 5 MG, 2X/DAY, (BID)
     Route: 048
     Dates: start: 2020, end: 20200219
  6. ATENOLOL. [Concomitant]
     Active Substance: ATENOLOL
     Indication: ATRIAL FIBRILLATION
     Dosage: 100 MG, DAILY
     Route: 065
  7. MORPHINE SULFATE. [Concomitant]
     Active Substance: MORPHINE SULFATE
     Indication: PAIN
     Dosage: UNK, AS NEEDED (5MG AM, 10MG PM, THEN 5MG)
     Route: 048
  8. XELJANZ [Suspect]
     Active Substance: TOFACITINIB CITRATE
     Dosage: 5 MG, 2X/DAY, (BID)
     Route: 048
     Dates: start: 20180121, end: 202001
  9. GREEN TEA EXTRACT [Concomitant]
     Dosage: UNK
  10. SULFASALAZINE. [Concomitant]
     Active Substance: SULFASALAZINE
     Indication: RHEUMATOID ARTHRITIS
     Dosage: 1 G, 2X/DAY, BID
     Route: 048

REACTIONS (23)
  - Therapeutic product effect incomplete [Unknown]
  - Musculoskeletal pain [Unknown]
  - Dyspnoea [Not Recovered/Not Resolved]
  - Chest X-ray abnormal [Unknown]
  - Mass [Unknown]
  - Sinusitis [Recovered/Resolved]
  - Headache [Unknown]
  - Pneumonia [Not Recovered/Not Resolved]
  - Dizziness [Recovered/Resolved]
  - Pain in extremity [Unknown]
  - Arthralgia [Not Recovered/Not Resolved]
  - Facial pain [Not Recovered/Not Resolved]
  - Ear pain [Not Recovered/Not Resolved]
  - Back pain [Unknown]
  - Ear congestion [Not Recovered/Not Resolved]
  - Insomnia [Unknown]
  - Intervertebral disc protrusion [Unknown]
  - Renal neoplasm [Unknown]
  - Renal cell carcinoma [Unknown]
  - Metastases to lung [Unknown]
  - Pyrexia [Recovered/Resolved]
  - Arthropathy [Unknown]
  - Nasal congestion [Not Recovered/Not Resolved]

NARRATIVE: CASE EVENT DATE: 20180108
